FAERS Safety Report 8814230 (Version 1)
Quarter: 2012Q4

REPORT INFORMATION
  Report Type: Spontaneous
  Country: US (occurrence: None)
  Receive Date: 20120926
  Receipt Date: 20120926
  Transmission Date: 20130627
  Serious: Yes (Life-Threatening, Hospitalization)
  Sender: FDA-Public Use
  Company Number: None

PATIENT
  Age: 78 Year
  Sex: Male
  Weight: 50 kg

DRUGS (2)
  1. CETUXIMAB [Suspect]
     Indication: SQUAMOUS CELL CARCINOMA OF THE ORAL CAVITY
     Route: 042
     Dates: start: 20120611, end: 20120718
  2. DOCETAXEL [Suspect]
     Indication: SQUAMOUS CELL CARCINOMA OF THE ORAL CAVITY
     Route: 042
     Dates: start: 20120611, end: 20120718

REACTIONS (14)
  - Gastric haemorrhage [None]
  - Respiratory distress [None]
  - Haematemesis [None]
  - Nausea [None]
  - Vomiting [None]
  - Asthenia [None]
  - Dehydration [None]
  - Fatigue [None]
  - Hyperhidrosis [None]
  - Abdominal pain upper [None]
  - Pulseless electrical activity [None]
  - Upper gastrointestinal haemorrhage [None]
  - Hiatus hernia [None]
  - Duodenal ulcer haemorrhage [None]
